FAERS Safety Report 4627527-1 (Version None)
Quarter: 2005Q2

REPORT INFORMATION
  Report Type: 
  Country: None (occurrence: None)
  Receive Date: 20050405
  Receipt Date: 20050324
  Transmission Date: 20051028
  Serious: Yes (Other)
  Sender: FDA-Public Use
  Company Number: HQWYE343324MAR05

PATIENT
  Age: 51 Year
  Sex: Female
  Weight: 72.64 kg

DRUGS (2)
  1. ADVIL [Suspect]
     Dosage: ORAL
     Route: 048
     Dates: start: 20041118, end: 20041118
  2. ALEVE [Suspect]
     Indication: HEADACHE
     Dosage: 440 MG 1X PER 1 DAY; ORAL
     Route: 048
     Dates: start: 20041118, end: 20041118

REACTIONS (5)
  - DRUG HYPERSENSITIVITY [None]
  - HYPOAESTHESIA ORAL [None]
  - RESPIRATORY RATE INCREASED [None]
  - SKIN WRINKLING [None]
  - VISION BLURRED [None]
